FAERS Safety Report 9783020 (Version 1)
Quarter: 2013Q4

REPORT INFORMATION
  Report Type: Report from Study
  Country: US (occurrence: US)
  Receive Date: 20131226
  Receipt Date: 20131226
  Transmission Date: 20140711
  Serious: Yes (Hospitalization)
  Sender: FDA-Public Use
  Company Number: US-ASTELLAS-2013US013385

PATIENT
  Age: 72 Year
  Sex: Male

DRUGS (2)
  1. ERLOTINIB TABLET [Suspect]
     Indication: NON-SMALL CELL LUNG CANCER STAGE IV
     Dosage: 150 MG, UID/QD
     Route: 048
     Dates: start: 20131122, end: 20131210
  2. LEVOFLOXACIN [Concomitant]
     Indication: INFECTION
     Dosage: UNK
     Route: 065

REACTIONS (13)
  - Pericardial effusion [Unknown]
  - Increased upper airway secretion [Not Recovered/Not Resolved]
  - Dysstasia [Unknown]
  - Ear pain [Unknown]
  - Aphagia [Not Recovered/Not Resolved]
  - Rash [Not Recovered/Not Resolved]
  - Local swelling [Not Recovered/Not Resolved]
  - Diarrhoea [Unknown]
  - Blister [Not Recovered/Not Resolved]
  - Malaise [Unknown]
  - Productive cough [Unknown]
  - Blister [Not Recovered/Not Resolved]
  - Weight decreased [Unknown]
